FAERS Safety Report 14067070 (Version 1)
Quarter: 2017Q4

REPORT INFORMATION
  Report Type: Spontaneous
  Country: JP (occurrence: JP)
  Receive Date: 20171009
  Receipt Date: 20171009
  Transmission Date: 20180321
  Serious: Yes (Hospitalization)
  Sender: FDA-Public Use
  Company Number: JP-SA-2017SA191731

PATIENT
  Age: 78 Year
  Sex: Male
  Weight: 73.8 kg

DRUGS (9)
  1. PLETAAL [Suspect]
     Active Substance: CILOSTAZOL
     Route: 048
     Dates: end: 20170228
  2. METGLUCO [Suspect]
     Active Substance: METFORMIN HYDROCHLORIDE
     Route: 048
  3. PLAVIX [Suspect]
     Active Substance: CLOPIDOGREL BISULFATE
     Route: 048
     Dates: start: 20170301
  4. PRANLUKAST [Suspect]
     Active Substance: PRANLUKAST
     Route: 048
     Dates: end: 20170213
  5. AMLODIPINE BESILATE [Suspect]
     Active Substance: AMLODIPINE BESYLATE
     Route: 048
  6. AMOBAN [Suspect]
     Active Substance: ZOPICLONE
     Route: 048
     Dates: end: 20170213
  7. ATORVASTATIN CALCIUM. [Suspect]
     Active Substance: ATORVASTATIN CALCIUM
     Route: 048
     Dates: end: 20170213
  8. GRIMAC [Concomitant]
     Route: 048
  9. ZETIA [Suspect]
     Active Substance: EZETIMIBE
     Route: 048
     Dates: end: 20170213

REACTIONS (6)
  - Oedema peripheral [Recovering/Resolving]
  - Eczema [Unknown]
  - Condition aggravated [Not Recovered/Not Resolved]
  - Eosinophil count increased [Unknown]
  - Dry skin [Unknown]
  - Dermatitis exfoliative [Not Recovered/Not Resolved]

NARRATIVE: CASE EVENT DATE: 201701
